FAERS Safety Report 20356387 (Version 1)
Quarter: 2022Q1

REPORT INFORMATION
  Report Type: Spontaneous
  Country: US (occurrence: US)
  Receive Date: 20220120
  Receipt Date: 20220120
  Transmission Date: 20220424
  Serious: Yes (Other)
  Sender: FDA-Public Use
  Company Number: US-GLAXOSMITHKLINE-US2022GSK002249

PATIENT
  Age: 8 Month
  Sex: Female

DRUGS (4)
  1. CEPHALEXIN [Suspect]
     Active Substance: CEPHALEXIN
     Indication: Viral upper respiratory tract infection
     Dosage: UNK
  2. CEPHALEXIN [Suspect]
     Active Substance: CEPHALEXIN
     Indication: Otitis media
  3. MUPIROCIN [Suspect]
     Active Substance: MUPIROCIN
     Indication: Dermatitis diaper
     Dosage: UNK
     Route: 061
  4. BARRIER CREAM [Suspect]
     Active Substance: ZINC OXIDE
     Indication: Dermatitis diaper
     Dosage: UNK
     Route: 061

REACTIONS (13)
  - Dermatitis diaper [Recovered/Resolved]
  - Diarrhoea [Recovered/Resolved]
  - Irritability [Recovered/Resolved]
  - Skin necrosis [Recovered/Resolved]
  - Urine output decreased [Recovered/Resolved]
  - Ecthyma [Recovered/Resolved]
  - Enteritis [Recovered/Resolved]
  - Inflammation [Recovered/Resolved]
  - Thrombocytopenia [Recovered/Resolved]
  - Neutropenia [Recovered/Resolved]
  - Acute kidney injury [Recovered/Resolved]
  - Anaemia [Recovered/Resolved]
  - Drug ineffective [Unknown]
